FAERS Safety Report 7510260-6 (Version None)
Quarter: 2011Q2

REPORT INFORMATION
  Report Type: 
  Country: None (occurrence: None)
  Receive Date: 20110527
  Receipt Date: 20110518
  Transmission Date: 20111010
  Serious: Yes (Other)
  Sender: FDA-Public Use
  Company Number: US-ASTRAZENECA-2011SE25919

PATIENT
  Age: 87 Year
  Sex: Female

DRUGS (2)
  1. NEXIUM [Suspect]
     Dosage: ONCE PER DAY
     Route: 048
  2. NEXIUM [Suspect]
     Dosage: TWO PER DAY
     Route: 048

REACTIONS (3)
  - GASTROOESOPHAGEAL REFLUX DISEASE [None]
  - ROTATOR CUFF SYNDROME [None]
  - OESOPHAGEAL DISORDER [None]
